FAERS Safety Report 24378843 (Version 1)
Quarter: 2024Q3

REPORT INFORMATION
  Report Type: Report from Study
  Country: AR (occurrence: AR)
  Receive Date: 20240930
  Receipt Date: 20240930
  Transmission Date: 20241017
  Serious: Yes (Hospitalization, Other)
  Sender: SANOFI AVENTIS
  Company Number: AR-SA-SAC20240806001235

PATIENT
  Age: 45 Year
  Sex: Male

DRUGS (1)
  1. ALGLUCOSIDASE ALFA [Suspect]
     Active Substance: ALGLUCOSIDASE ALFA
     Indication: Glycogen storage disease type II
     Dosage: 30 DF (VIALS), QOW
     Route: 042
     Dates: start: 20201203

REACTIONS (4)
  - Carbon dioxide increased [Recovering/Resolving]
  - Dyspnoea [Not Recovered/Not Resolved]
  - Oxygen saturation decreased [Not Recovered/Not Resolved]
  - Pneumothorax [Recovering/Resolving]

NARRATIVE: CASE EVENT DATE: 20240730
